FAERS Safety Report 6278027-7 (Version None)
Quarter: 2009Q3

REPORT INFORMATION
  Report Type: 
  Country: None (occurrence: None)
  Receive Date: 20090722
  Receipt Date: 20090709
  Transmission Date: 20100115
  Serious: Yes (Other)
  Sender: FDA-Public Use
  Company Number: PHEH2009US07520

PATIENT
  Sex: Female
  Weight: 48.98 kg

DRUGS (2)
  1. EXJADE [Suspect]
     Indication: BLOOD IRON INCREASED
     Dosage: 1000 MG DAILY
     Route: 048
  2. CHEMOTHERAPEUTICS NOS [Concomitant]

REACTIONS (3)
  - SKIN DISCOLOURATION [None]
  - SKIN DISORDER [None]
  - WEIGHT DECREASED [None]
